FAERS Safety Report 9557676 (Version 1)
Quarter: 2013Q3

REPORT INFORMATION
  Report Type: Spontaneous
  Country: US (occurrence: None)
  Receive Date: 20130726
  Receipt Date: 20130726
  Transmission Date: 20140515
  Serious: Yes (Hospitalization)
  Sender: FDA-Public Use
  Company Number: UTC-029262

PATIENT
  Age: 65 Year
  Sex: Male

DRUGS (3)
  1. REMODULIN (5 MILLIGRAM/MILLILITERS, INJECTION FOR INFUSION) (TREPROSTINIL SODIUM) [Suspect]
     Indication: PULMONARY ARTERIAL HYPERTENSION
     Dosage: 43.2 UG/KG (0.03 UG/KG, 1 IN 1 MIN), SUCUTANEOUS
     Route: 058
     Dates: start: 20110715
  2. ADCIRCA (TADALAFIL) [Concomitant]
  3. LETAIRIS (AMBRISENTAN) (TABLETS) [Concomitant]

REACTIONS (1)
  - Pulmonary hypertension [None]
